FAERS Safety Report 10671775 (Version 1)
Quarter: 2014Q4

REPORT INFORMATION
  Report Type: Spontaneous
  Country: US (occurrence: None)
  Receive Date: 20141222
  Receipt Date: 20141222
  Transmission Date: 20150529
  Serious: No
  Sender: FDA-Public Use
  Company Number: None

PATIENT
  Age: 45 Year
  Sex: Female
  Weight: 65.32 kg

DRUGS (2)
  1. XYREM [Suspect]
     Active Substance: SODIUM OXYBATE
     Indication: INSOMNIA
     Dosage: 4.5 GRAMS, 2 X PER NIGHT, TWICE DAILY, TAKEN BY MOUTH
     Route: 048
  2. XYREM [Suspect]
     Active Substance: SODIUM OXYBATE
     Indication: FIBROMYALGIA
     Dosage: 4.5 GRAMS, 2 X PER NIGHT, TWICE DAILY, TAKEN BY MOUTH
     Route: 048

REACTIONS (2)
  - Skin irritation [None]
  - Eye irritation [None]

NARRATIVE: CASE EVENT DATE: 20141220
